FAERS Safety Report 5708568-X (Version None)
Quarter: 2008Q2

REPORT INFORMATION
  Report Type: 
  Country: None (occurrence: None)
  Receive Date: 20080417
  Receipt Date: 20080411
  Transmission Date: 20081010
  Serious: Yes (Other)
  Sender: FDA-Public Use
  Company Number: US-PFIZER INC-2008032625

PATIENT
  Sex: Female
  Weight: 80.909 kg

DRUGS (5)
  1. XALATAN [Suspect]
     Indication: GLAUCOMA
  2. ZOLOFT [Concomitant]
  3. CARTIA XT [Concomitant]
  4. HYDROCHLOROTHIAZIDE [Concomitant]
  5. DIURETICS [Concomitant]

REACTIONS (5)
  - EYE SWELLING [None]
  - OEDEMA PERIPHERAL [None]
  - PHARMACEUTICAL PRODUCT COMPLAINT [None]
  - SURGERY [None]
  - VISUAL ACUITY REDUCED [None]
